FAERS Safety Report 4716041-0 (Version None)
Quarter: 2005Q3

REPORT INFORMATION
  Report Type: 
  Country: None (occurrence: None)
  Receive Date: 20050718
  Receipt Date: 20050620
  Transmission Date: 20060218
  Serious: Yes (Other)
  Sender: FDA-Public Use
  Company Number: 200511825JP

PATIENT
  Age: 38 Year
  Sex: Female

DRUGS (3)
  1. KETEK [Suspect]
     Indication: SINUSITIS
     Dosage: DOSE: 2TABLETS
     Route: 048
     Dates: start: 20050618, end: 20050619
  2. ALESION [Concomitant]
     Dosage: DOSE: 1TABLET
     Route: 048
     Dates: start: 20050618, end: 20050619
  3. EMPYNASE P [Concomitant]
     Dosage: DOSE: 3 TABLETS A DAY
     Route: 048
     Dates: start: 20050618, end: 20050619

REACTIONS (1)
  - FACIAL PALSY [None]
